FAERS Safety Report 8295748-5 (Version None)
Quarter: 2012Q2

REPORT INFORMATION
  Report Type: 
  Country: None (occurrence: None)
  Receive Date: 20120418
  Receipt Date: 20120413
  Transmission Date: 20120825
  Serious: No
  Sender: FDA-Public Use
  Company Number: US-PFIZER INC-2012092781

PATIENT
  Sex: Male
  Weight: 113 kg

DRUGS (11)
  1. METOPROLOL [Concomitant]
     Indication: CARDIAC DISORDER
     Dosage: 25 MG, DAILY
  2. TORSEMIDE [Concomitant]
     Indication: DIURETIC THERAPY
     Dosage: 20 MG, DAILY
  3. WARFARIN [Concomitant]
     Indication: DIURETIC THERAPY
     Dosage: 20 MG, DAILY
  4. GABAPENTIN [Concomitant]
     Indication: DIABETIC NEUROPATHY
     Dosage: 600 MG, DAILY
  5. METOPROLOL [Concomitant]
     Indication: LUNG DISORDER
  6. PRISTIQ [Suspect]
     Indication: DEPRESSION
     Dosage: 50 MG, DAILY
     Route: 048
  7. LISINOPRIL [Concomitant]
     Indication: CARDIAC DISORDER
     Dosage: 10 MG, DAILY
  8. LISINOPRIL [Concomitant]
     Indication: LUNG DISORDER
  9. PRISTIQ [Suspect]
     Indication: OBSESSIVE-COMPULSIVE DISORDER
     Dosage: 100 MG, DAILY
     Route: 048
     Dates: end: 20111101
  10. LOVASTATIN [Concomitant]
     Indication: BLOOD CHOLESTEROL INCREASED
     Dosage: 20 MG, DAILY
  11. ADVAIR DISKUS 100/50 [Concomitant]
     Indication: CHRONIC OBSTRUCTIVE PULMONARY DISEASE
     Dosage: UNK, 2X/DAY

REACTIONS (4)
  - MALAISE [None]
  - GENERAL PHYSICAL CONDITION ABNORMAL [None]
  - ACCIDENT [None]
  - CRYING [None]
